FAERS Safety Report 5588550-6 (Version None)
Quarter: 2007Q4

REPORT INFORMATION
  Report Type: 
  Country: None (occurrence: None)
  Receive Date: 20071212
  Receipt Date: 20070824
  Transmission Date: 20080405
  Serious: No
  Sender: FDA-Public Use
  Company Number: 2007RL000382

PATIENT
  Age: 66 Year
  Sex: Male
  Weight: 49.8957 kg

DRUGS (6)
  1. LOVAZA [Suspect]
     Indication: LIPIDS
     Dosage: 3 GM;QD;PO
     Route: 048
     Dates: start: 20061101, end: 20070701
  2. POTASSIUM CHLORIDE [Concomitant]
  3. ASPIRIN [Concomitant]
  4. VITAMIN E /00110501/ [Concomitant]
  5. SUPPLEMENTS [Concomitant]
  6. ^WATER PILL^ [Concomitant]

REACTIONS (2)
  - BREAST MASS [None]
  - OFF LABEL USE [None]
